FAERS Safety Report 6764106-4 (Version None)
Quarter: 2010Q2

REPORT INFORMATION
  Report Type: 
  Country: None (occurrence: None)
  Receive Date: 20100608
  Receipt Date: 20100602
  Transmission Date: 20101027
  Serious: Yes (Other)
  Sender: FDA-Public Use
  Company Number: 003900

PATIENT
  Sex: Female
  Weight: 79.8 kg

DRUGS (7)
  1. CERTOLIZUMAB PEGOL (CERTOLIZUMAB PEGOL) [Suspect]
     Indication: RHEUMATOID ARTHRITIS
     Dosage: SEE IMAGE
     Route: 058
     Dates: start: 20051214, end: 20060531
  2. CERTOLIZUMAB PEGOL (CERTOLIZUMAB PEGOL) [Suspect]
     Indication: RHEUMATOID ARTHRITIS
     Dosage: SEE IMAGE
     Route: 058
     Dates: start: 20060531, end: 20071031
  3. CERTOLIZUMAB PEGOL (CERTOLIZUMAB PEGOL) [Suspect]
     Indication: RHEUMATOID ARTHRITIS
     Dosage: SEE IMAGE
     Route: 058
     Dates: start: 20071114, end: 20091224
  4. METHOTREXATE [Concomitant]
  5. FOLIC ACID [Concomitant]
  6. ATENOLOL [Concomitant]
  7. ATORVASTATIN [Concomitant]

REACTIONS (2)
  - COLON CANCER STAGE II [None]
  - COMPUTERISED TOMOGRAM ABNORMAL [None]
